FAERS Safety Report 5313423-3 (Version None)
Quarter: 2007Q2

REPORT INFORMATION
  Report Type: 
  Country: None (occurrence: None)
  Receive Date: 20070501
  Receipt Date: 20070427
  Transmission Date: 20071010
  Serious: Yes (Hospitalization)
  Sender: FDA-Public Use
  Company Number: HQWYE444403APR07

PATIENT
  Age: 89 Year
  Sex: Female

DRUGS (6)
  1. CORDARONE [Suspect]
     Route: 048
  2. NORDAZ [Concomitant]
     Route: 048
  3. FUROSEMIDE [Concomitant]
     Route: 048
  4. SEROPLEX [Concomitant]
  5. ACEBUTOLOL [Concomitant]
     Route: 048
  6. DIFFU K [Concomitant]
     Route: 048

REACTIONS (3)
  - CARDIAC FAILURE [None]
  - HYPERTHYROIDISM [None]
  - PLEURAL EFFUSION [None]
